FAERS Safety Report 5677720-4 (Version None)
Quarter: 2008Q1

REPORT INFORMATION
  Report Type: 
  Country: None (occurrence: None)
  Receive Date: 20080324
  Receipt Date: 20080229
  Transmission Date: 20080703
  Serious: No
  Sender: FDA-Public Use
  Company Number: US-BOEHRINGER INGELHEIM GMBH, GERMANY-2008-BP-02551BP

PATIENT
  Sex: Female

DRUGS (1)
  1. MOBIC [Suspect]
     Indication: MIXED CONNECTIVE TISSUE DISEASE
     Dates: start: 20020201

REACTIONS (2)
  - ADRENAL ADENOMA [None]
  - HEPATIC CYST [None]
